FAERS Safety Report 9654729 (Version 2)
Quarter: 2013Q4

REPORT INFORMATION
  Report Type: Spontaneous
  Country: DE (occurrence: None)
  Receive Date: 20131015
  Receipt Date: 20131018
  Transmission Date: 20140711
  Serious: Yes (Death)
  Sender: FDA-Public Use
  Company Number: 2013038277

PATIENT
  Age: 78 Year
  Sex: Male

DRUGS (9)
  1. PRIVIGEN [Suspect]
     Indication: CHRONIC LYMPHOCYTIC LEUKAEMIA
     Route: 042
     Dates: start: 20111101, end: 20111101
  2. PRIVIGEN [Suspect]
     Indication: INFECTION
     Route: 042
     Dates: start: 20111101, end: 20111101
  3. PRIVIGEN [Suspect]
     Indication: SECONDARY IMMUNODEFICIENCY
     Route: 042
     Dates: start: 20111101, end: 20111101
  4. INSULIN (INSULIN) [Concomitant]
  5. PANTOPRAZOLE (PANTOPRAZOLE) [Concomitant]
  6. GABAPENTIN (GABA[EMTIN) [Concomitant]
  7. ACICLOVIR (ACICLOVIR)? [Concomitant]
  8. AMPHO MORONAL (AMPHOTERICIN B) [Concomitant]
  9. TAVEGIL/00137201/(CLEMASTINE) [Concomitant]

REACTIONS (3)
  - Erysipelas [None]
  - Chronic lymphocytic leukaemia [None]
  - Malignant neoplasm progression [None]
